FAERS Safety Report 7628187-8 (Version None)
Quarter: 2011Q3

REPORT INFORMATION
  Report Type: 
  Country: None (occurrence: None)
  Receive Date: 20110722
  Receipt Date: 20110719
  Transmission Date: 20111222
  Serious: Yes (Hospitalization)
  Sender: FDA-Public Use
  Company Number: DE-BAYER-2011-062424

PATIENT
  Age: 46 Year
  Sex: Female
  Weight: 48 kg

DRUGS (3)
  1. EVEROLIMUS [Suspect]
     Indication: NEOPLASM
     Dosage: 5 MG, QD
     Route: 048
     Dates: start: 20100625, end: 20110714
  2. IBUPROFEN [Concomitant]
     Indication: TUMOUR PAIN
     Dosage: UNK
     Route: 048
  3. SORAFENIB (RAF KINASE INHIBITOR) [Suspect]
     Indication: NEOPLASM
     Dosage: 400 MG, BID
     Route: 048
     Dates: start: 20100709, end: 20110715

REACTIONS (1)
  - COLITIS [None]
